FAERS Safety Report 4433957-3 (Version None)
Quarter: 2004Q3

REPORT INFORMATION
  Report Type: 
  Country: None (occurrence: None)
  Receive Date: 20040826
  Receipt Date: 20040729
  Transmission Date: 20050211
  Serious: Yes (Hospitalization)
  Sender: FDA-Public Use
  Company Number: PHNU2004DE02728

PATIENT
  Age: 47 Year
  Sex: Female

DRUGS (4)
  1. CAFERGOT [Suspect]
     Indication: MIGRAINE
     Dosage: 0.5-1 DF/D
     Route: 054
     Dates: start: 19880201, end: 19910101
  2. CAFERGOT [Suspect]
     Dosage: 12 DF/YEAR
     Route: 054
     Dates: start: 19920101, end: 19930101
  3. IMIGRAN                                 /NOR/ [Concomitant]
     Dates: start: 19950101, end: 20040101
  4. ACETYLSALICYLIC ACID [Concomitant]
     Dates: start: 19930101, end: 20040101

REACTIONS (5)
  - ASTHENIA [None]
  - DIFFICULTY IN WALKING [None]
  - DRUG DEPENDENCE [None]
  - HYPERTONIA [None]
  - PARAESTHESIA [None]
